FAERS Safety Report 5263079-3 (Version None)
Quarter: 2007Q1

REPORT INFORMATION
  Report Type: 
  Country: None (occurrence: None)
  Receive Date: 20070312
  Receipt Date: 20070228
  Transmission Date: 20070707
  Serious: Yes (Death, Hospitalization, Other)
  Sender: FDA-Public Use
  Company Number: US-PFIZER INC-2005041264

PATIENT
  Sex: Male

DRUGS (7)
  1. NEURONTIN [Suspect]
     Indication: BIPOLAR DISORDER
     Dates: start: 19990422, end: 20020218
  2. NEURONTIN [Suspect]
     Indication: ANXIETY DISORDER
  3. NEURONTIN [Suspect]
     Indication: BACK PAIN
  4. DEPAKOTE [Concomitant]
  5. PAXIL [Concomitant]
  6. BUSPAR [Concomitant]
  7. IMIPRAMINE [Concomitant]

REACTIONS (3)
  - COMPLETED SUICIDE [None]
  - DRUG INEFFECTIVE [None]
  - MANIA [None]
